FAERS Safety Report 8005862-7 (Version None)
Quarter: 2011Q4

REPORT INFORMATION
  Report Type: 
  Country: None (occurrence: None)
  Receive Date: 20111223
  Receipt Date: 20111216
  Transmission Date: 20120403
  Serious: Yes (Hospitalization, Other)
  Sender: FDA-Public Use
  Company Number: US-ASTRAZENECA-2010SE57317

PATIENT
  Age: 63 Year
  Sex: Female
  Weight: 45.4 kg

DRUGS (5)
  1. SYMBICORT [Suspect]
     Indication: ASTHMA
     Dosage: 160/4.5 MCG, QD
     Route: 055
     Dates: start: 20080101
  2. SPIRIVA [Concomitant]
     Indication: ASTHMA
     Route: 055
  3. CRESTOR [Suspect]
     Indication: HYPERCHOLESTEROLAEMIA
     Route: 048
  4. GOUT MEDICATION [Concomitant]
     Indication: GOUT
     Route: 048
  5. NEXIUM [Suspect]
     Route: 048

REACTIONS (3)
  - RENAL DISORDER [None]
  - FALL [None]
  - HIP FRACTURE [None]
